FAERS Safety Report 16117651 (Version 2)
Quarter: 2019Q3

REPORT INFORMATION
  Report Type: Report from Study
  Country: None (occurrence: BR)
  Receive Date: 20190326
  Receipt Date: 20190827
  Transmission Date: 20191004
  Serious: Yes (Disabling)
  Sender: FDA-Public Use
  Company Number: BR-ABBVIE-18K-020-2275470-00

PATIENT
  Sex: Male
  Weight: 73 kg

DRUGS (5)
  1. PROLEPTOL [Concomitant]
     Indication: ANKYLOSING SPONDYLITIS
  2. LOSARTAN. [Concomitant]
     Active Substance: LOSARTAN
     Indication: HYPERTENSION
  3. OMEPRAZOLE. [Concomitant]
     Active Substance: OMEPRAZOLE
     Indication: GASTRIC DISORDER
  4. HUMIRA [Suspect]
     Active Substance: ADALIMUMAB
     Indication: ANKYLOSING SPONDYLITIS
     Route: 058
     Dates: start: 20160518
  5. HUMIRA [Suspect]
     Active Substance: ADALIMUMAB
     Route: 058

REACTIONS (29)
  - Cartilage injury [Unknown]
  - Asthenia [Unknown]
  - Gait disturbance [Unknown]
  - Therapeutic response shortened [Unknown]
  - Headache [Unknown]
  - Peripheral swelling [Not Recovered/Not Resolved]
  - Bursitis [Not Recovered/Not Resolved]
  - Joint range of motion decreased [Unknown]
  - Neuropathy peripheral [Unknown]
  - Neck pain [Unknown]
  - Neuritis [Not Recovered/Not Resolved]
  - Emotional disorder [Unknown]
  - Pain in extremity [Not Recovered/Not Resolved]
  - Bone pain [Unknown]
  - Spinal pain [Unknown]
  - Pain [Not Recovered/Not Resolved]
  - Back pain [Unknown]
  - Disability [Not Recovered/Not Resolved]
  - Muscular weakness [Unknown]
  - Bone disorder [Unknown]
  - Pain [Unknown]
  - Loss of personal independence in daily activities [Unknown]
  - Swelling [Unknown]
  - Discomfort [Not Recovered/Not Resolved]
  - Joint swelling [Not Recovered/Not Resolved]
  - Arthritis [Not Recovered/Not Resolved]
  - Arthralgia [Not Recovered/Not Resolved]
  - Neuralgia [Unknown]
  - Musculoskeletal discomfort [Unknown]

NARRATIVE: CASE EVENT DATE: 2016
